FAERS Safety Report 15698452 (Version 1)
Quarter: 2018Q4

REPORT INFORMATION
  Report Type: Spontaneous
  Country: JP (occurrence: JP)
  Receive Date: 20181207
  Receipt Date: 20181207
  Transmission Date: 20190205
  Serious: Yes (Death, Other)
  Sender: FDA-Public Use
  Company Number: JP-TOLMAR, INC.-2018JP012010

PATIENT

DRUGS (1)
  1. ELIGARD [Suspect]
     Active Substance: LEUPROLIDE ACETATE
     Indication: PROSTATE CANCER
     Dosage: UNK
     Route: 065

REACTIONS (5)
  - Autoimmune thyroiditis [Unknown]
  - Septic shock [Fatal]
  - Myxoedema coma [Unknown]
  - Pancreatitis acute [Unknown]
  - Disseminated intravascular coagulation [Unknown]
